FAERS Safety Report 8383366 (Version 8)
Quarter: 2015Q4

REPORT INFORMATION
  Report Type: Spontaneous
  Country: US (occurrence: US)
  Receive Date: 20120201
  Receipt Date: 20151116
  Transmission Date: 20160305
  Serious: Yes (Other)
  Sender: FDA-Public Use
  Company Number: US-GLAXOSMITHKLINE-A0963306A

PATIENT
  Age: 67 Year
  Sex: Male
  Weight: 69.5 kg

DRUGS (3)
  1. FLOLAN [Suspect]
     Active Substance: EPOPROSTENOL SODIUM
     Indication: PULMONARY HYPERTENSION
     Dosage: UNK
     Dates: start: 20080310
  2. FLOLAN [Suspect]
     Active Substance: EPOPROSTENOL SODIUM
     Indication: COR PULMONALE CHRONIC
     Dosage: 22.5  NG/KG/MIN CONTINUOUSLY (CONCENTRATION 30,000 NG/ML; 1.5 MG VIAL STRENGTH)PUMP RATE 75 ML/DAY
     Route: 042
     Dates: start: 20080310
  3. FLOLAN [Suspect]
     Active Substance: EPOPROSTENOL SODIUM
     Indication: PULMONARY HYPERTENSION
     Dosage: 22.5 NG/KG/MIN CONTINUOUSLY; CONCENTRATION: 30,000 NG/ML; PUMP RATE: 75 ML/DAY; VIAL STRENGTH: 1.5MG
     Route: 042
     Dates: start: 20080228

REACTIONS (10)
  - Application site erythema [Recovered/Resolved]
  - Feeling abnormal [Unknown]
  - Dyspnoea [Unknown]
  - Pancreatitis [Recovered/Resolved]
  - Malaise [Unknown]
  - Hyperhidrosis [Recovered/Resolved]
  - Adverse event [Unknown]
  - Feeling hot [Recovered/Resolved]
  - Application site pruritus [Recovered/Resolved]
  - Catheter site erythema [Recovered/Resolved]

NARRATIVE: CASE EVENT DATE: 20120118
